FAERS Safety Report 19482588 (Version 4)
Quarter: 2021Q4

REPORT INFORMATION
  Report Type: Spontaneous
  Country: GB (occurrence: GB)
  Receive Date: 20210701
  Receipt Date: 20211018
  Transmission Date: 20220303
  Serious: Yes (Hospitalization, Disabling, Other)
  Sender: FDA-Public Use
  Company Number: None

PATIENT
  Age: 70 Year
  Sex: Male

DRUGS (26)
  1. WARFARIN SODIUM [Interacting]
     Active Substance: WARFARIN SODIUM
     Indication: Pulmonary embolism
     Dosage: NI
     Route: 048
  2. WARFARIN SODIUM [Interacting]
     Active Substance: WARFARIN SODIUM
     Indication: Factor V deficiency
  3. ERYTHROMYCIN [Interacting]
     Active Substance: ERYTHROMYCIN
     Indication: Periorbital cellulitis
     Dosage: 250 MG, 4X PER DAY
     Route: 048
  4. ERYTHROMYCIN [Interacting]
     Active Substance: ERYTHROMYCIN
     Indication: Chalazion
  5. ERYTHROMYCIN [Interacting]
     Active Substance: ERYTHROMYCIN
     Indication: Antibiotic therapy
  6. ERYTHROMYCIN [Interacting]
     Active Substance: ERYTHROMYCIN
     Indication: Cellulitis
  7. METRONIDAZOLE [Interacting]
     Active Substance: METRONIDAZOLE
     Indication: Chalazion
     Dosage: 400 MG,TID
     Route: 048
  8. METRONIDAZOLE [Interacting]
     Active Substance: METRONIDAZOLE
     Indication: Periorbital cellulitis
  9. METRONIDAZOLE [Interacting]
     Active Substance: METRONIDAZOLE
     Indication: Antibiotic therapy
  10. CIPROFLOXACIN [Interacting]
     Active Substance: CIPROFLOXACIN
     Indication: Chalazion
     Dosage: 750 MG, 2X PER DAY
     Route: 048
  11. CIPROFLOXACIN [Interacting]
     Active Substance: CIPROFLOXACIN
     Indication: Periorbital cellulitis
  12. CIPROFLOXACIN [Interacting]
     Active Substance: CIPROFLOXACIN
     Indication: Antibiotic therapy
  13. CLOPIDOGREL BISULFATE [Interacting]
     Active Substance: CLOPIDOGREL BISULFATE
     Indication: Chest pain
     Dosage: 300 MG, QD
     Route: 048
  14. CLOPIDOGREL BISULFATE [Interacting]
     Active Substance: CLOPIDOGREL BISULFATE
     Indication: Antiplatelet therapy
     Dosage: 75 MG, QD
     Route: 048
  15. TEICOPLANIN [Interacting]
     Active Substance: TEICOPLANIN
     Indication: Chalazion
     Dosage: 400 MG, QD (PARENTERAL)
     Route: 030
  16. TEICOPLANIN [Interacting]
     Active Substance: TEICOPLANIN
     Indication: Periorbital cellulitis
  17. TEICOPLANIN [Interacting]
     Active Substance: TEICOPLANIN
     Indication: Cellulitis
  18. TEICOPLANIN [Interacting]
     Active Substance: TEICOPLANIN
     Indication: Antibiotic therapy
  19. MEROPENEM [Interacting]
     Active Substance: MEROPENEM
     Indication: Chalazion
     Dosage: 2 G, 2X PER DAY
     Route: 030
  20. MEROPENEM [Interacting]
     Active Substance: MEROPENEM
     Indication: Periorbital cellulitis
     Dosage: 2 G, 2X PER DAY
     Route: 042
  21. MEROPENEM [Interacting]
     Active Substance: MEROPENEM
     Indication: Antibiotic therapy
  22. MEROPENEM [Interacting]
     Active Substance: MEROPENEM
     Indication: Cellulitis
  23. ASPIRIN [Interacting]
     Active Substance: ASPIRIN
     Indication: Chest pain
     Dosage: PATIENT RECEIVED 300MG ON ADMITTANCE AND STARTED ON A 75MG/DAY REGIME
  24. ASPIRIN [Interacting]
     Active Substance: ASPIRIN
     Indication: Antiplatelet therapy
     Dosage: PATIENT RECEIVED 300MG ON ADMITTANCE AND STARTED ON A 75MG/DAY REGIME
  25. VITAMIN K [Concomitant]
     Active Substance: PHYTONADIONE
     Indication: Coagulation time prolonged
     Dosage: UNK
  26. VITAMIN K [Concomitant]
     Active Substance: PHYTONADIONE
     Indication: Product used for unknown indication

REACTIONS (13)
  - Hyphaema [Recovered/Resolved with Sequelae]
  - Eye pain [Recovered/Resolved with Sequelae]
  - Visual impairment [Not Recovered/Not Resolved]
  - Visual acuity reduced [Recovered/Resolved with Sequelae]
  - Intraocular pressure increased [Not Recovered/Not Resolved]
  - Headache [Not Recovered/Not Resolved]
  - Decreased appetite [Unknown]
  - Pyrexia [Unknown]
  - Nausea [Unknown]
  - Coagulation time prolonged [Recovered/Resolved]
  - International normalised ratio increased [Recovered/Resolved]
  - Potentiating drug interaction [Recovered/Resolved]
  - Off label use [Unknown]
